FAERS Safety Report 20867933 (Version 1)
Quarter: 2022Q2

REPORT INFORMATION
  Report Type: Spontaneous
  Country: US (occurrence: US)
  Receive Date: 20220524
  Receipt Date: 20220524
  Transmission Date: 20220720
  Serious: Yes (Other)
  Sender: FDA-Public Use
  Company Number: US-IBSA PHARMA INC.-2022IBS000143

PATIENT

DRUGS (2)
  1. TIROSINT [Suspect]
     Active Substance: LEVOTHYROXINE SODIUM
     Indication: Product used for unknown indication
     Dosage: 100 ?G, AS DIRECTED
     Route: 048
  2. TIROSINT [Suspect]
     Active Substance: LEVOTHYROXINE SODIUM
     Dosage: 125 ?G, AS DIRECTED
     Route: 048

REACTIONS (2)
  - Thyroid mass [Unknown]
  - Blood pressure increased [Unknown]
